FAERS Safety Report 6939484-3 (Version None)
Quarter: 2010Q3

REPORT INFORMATION
  Report Type: 
  Country: None (occurrence: None)
  Receive Date: 20100819
  Receipt Date: 20100807
  Transmission Date: 20110219
  Serious: Yes (Hospitalization)
  Sender: FDA-Public Use
  Company Number: AUR-APL-2010-01990

PATIENT
  Age: 25 Year
  Sex: Female

DRUGS (3)
  1. METFORMIN HCL [Suspect]
     Indication: DIABETES MELLITUS
  2. REGULAR INSULIN [Suspect]
     Indication: DIABETES MELLITUS
     Dosage: 200IU, DAILY, SC
     Route: 058
  3. ACTOS [Suspect]
     Indication: DIABETES MELLITUS

REACTIONS (5)
  - DIABETIC COMPLICATION [None]
  - INFARCTION [None]
  - MUSCLE DISORDER [None]
  - OEDEMA PERIPHERAL [None]
  - PAIN IN EXTREMITY [None]
